FAERS Safety Report 22995540 (Version 2)
Quarter: 2023Q4

REPORT INFORMATION
  Report Type: Spontaneous
  Country: US (occurrence: US)
  Receive Date: 20230927
  Receipt Date: 20231227
  Transmission Date: 20240110
  Serious: No
  Sender: FDA-Public Use
  Company Number: US-SA-SAC20230925001219

PATIENT
  Age: 34 Year
  Sex: Male

DRUGS (2)
  1. DUPIXENT [Suspect]
     Active Substance: DUPILUMAB
     Indication: Dermatitis atopic
     Dosage: 300 MG, QOW
     Route: 058
  2. CLOBETASOL [Concomitant]
     Active Substance: CLOBETASOL
     Indication: Skin disorder
     Dosage: UNK

REACTIONS (5)
  - Immune system disorder [Unknown]
  - Nasopharyngitis [Unknown]
  - Skin discolouration [Unknown]
  - Therapeutic response shortened [Unknown]
  - Therapeutic response decreased [Unknown]
